FAERS Safety Report 6894398-2 (Version None)
Quarter: 2010Q3

REPORT INFORMATION
  Report Type: 
  Country: None (occurrence: None)
  Receive Date: 20100727
  Receipt Date: 20100712
  Transmission Date: 20110219
  Serious: Yes (Other)
  Sender: FDA-Public Use
  Company Number: DSJ-2010-11481

PATIENT
  Age: 67 Year
  Sex: Female

DRUGS (7)
  1. BENICAR HCT [Suspect]
     Indication: HYPERTENSION
     Dosage: 40/12,5 MG (1 IN 1 D), PER ORAL
     Route: 048
     Dates: start: 20080812, end: 20081001
  2. BENICAR HCT [Suspect]
     Indication: HYPERTENSION
     Dosage: 40/12,5 MG (1 IN 1 D), PER ORAL
     Route: 048
     Dates: start: 20100701
  3. ALENDRONATE SODIUM (ALENDRONATE SODIUM) (ALENDRONATE SODIUM) [Concomitant]
  4. OMEPRAZOLE [Concomitant]
  5. MELOXICAN [Concomitant]
  6. DIMETICONE (DIMETICONE) (DIMETICONE) [Concomitant]
  7. DIVERTICULITIS MEDICINE [Concomitant]

REACTIONS (8)
  - DRUG INEFFECTIVE [None]
  - FEELING HOT [None]
  - HYPOTENSION [None]
  - NECK PAIN [None]
  - OEDEMA PERIPHERAL [None]
  - PAIN IN EXTREMITY [None]
  - SKIN HYPERPIGMENTATION [None]
  - SYNCOPE [None]
